FAERS Safety Report 16611742 (Version 1)
Quarter: 2019Q3

REPORT INFORMATION
  Report Type: Spontaneous
  Country: US (occurrence: US)
  Receive Date: 20190722
  Receipt Date: 20190722
  Transmission Date: 20191004
  Serious: No
  Sender: FDA-Public Use
  Company Number: US-ALLERGAN-1914047US

PATIENT
  Sex: Female

DRUGS (1)
  1. TRIPTORELIN PAMOATE - BP [Suspect]
     Active Substance: TRIPTORELIN PAMOATE
     Indication: PRODUCT USED FOR UNKNOWN INDICATION
     Dosage: UNK, SINGLE
     Route: 030
     Dates: start: 20171205, end: 20171205

REACTIONS (5)
  - Attention deficit/hyperactivity disorder [Unknown]
  - Mood altered [Unknown]
  - Acne [Unknown]
  - Abnormal behaviour [Unknown]
  - Breast enlargement [Unknown]
